FAERS Safety Report 25900775 (Version 1)
Quarter: 2025Q4

REPORT INFORMATION
  Report Type: Spontaneous
  Country: US (occurrence: US)
  Receive Date: 20251009
  Receipt Date: 20251009
  Transmission Date: 20260118
  Serious: No
  Sender: MACLEODS
  Company Number: US-MACLEODS PHARMA-MAC2025055610

PATIENT

DRUGS (5)
  1. QUETIAPINE [Suspect]
     Active Substance: QUETIAPINE
     Indication: Product used for unknown indication
     Route: 065
  2. ZYPREXA [Suspect]
     Active Substance: OLANZAPINE
     Indication: Product used for unknown indication
     Dosage: FOR 10 MONTHS
     Route: 065
  3. ZYPREXA [Suspect]
     Active Substance: OLANZAPINE
     Dosage: FOR ALMOST 2 YEARS
     Route: 065
  4. RISPERIDONE [Suspect]
     Active Substance: RISPERIDONE
     Indication: Product used for unknown indication
     Route: 065
  5. LITHIUM [Suspect]
     Active Substance: LITHIUM
     Indication: Product used for unknown indication
     Route: 065

REACTIONS (16)
  - Dehydration [Unknown]
  - Mobility decreased [Unknown]
  - Coordination abnormal [Unknown]
  - Cognitive disorder [Unknown]
  - Sleep disorder [Unknown]
  - Musculoskeletal stiffness [Unknown]
  - Tremor [Unknown]
  - Renal function test abnormal [Unknown]
  - Trismus [Unknown]
  - Dry throat [Unknown]
  - Dysphagia [Unknown]
  - Emotional disorder [Unknown]
  - Visual impairment [Unknown]
  - Memory impairment [Unknown]
  - Learning disorder [Unknown]
  - Constipation [Unknown]
